FAERS Safety Report 9206043 (Version 1)
Quarter: 2013Q1

REPORT INFORMATION
  Report Type: Spontaneous
  Country: US (occurrence: None)
  Receive Date: 20120731
  Receipt Date: 20120731
  Transmission Date: 20140127
  Serious: Yes (Other)
  Sender: FDA-Public Use
  Company Number: US201205002638

PATIENT
  Age: 63 Year
  Sex: Female
  Weight: 91.6 kg

DRUGS (14)
  1. BYETTA (EXENATIDE) PEN, DISPOSABLE [Suspect]
     Indication: TYPE 2 DIABETES MELLITUS
     Route: 058
     Dates: start: 2009
  2. GLIMEPIRIDE (GLIMEPIRIDE) [Concomitant]
  3. GLUCOPHAGE (METFORMIN HYDROCHLORIDE) [Concomitant]
  4. LANTUS (INSULIN GLARGINE) [Concomitant]
  5. NOVOLOG (INSULIN ASPART) [Concomitant]
  6. LANOXIN (DIGOXIN) [Concomitant]
  7. TORSEMIDE [Concomitant]
  8. SPIRONOLACTONE (SPIRONOLACTONE) [Concomitant]
  9. COREG (CARVEDILOL) [Concomitant]
  10. SIMVASTATIN (SIMVASTATIN) [Concomitant]
  11. SPIRIVA HANDIHALER (TIOTROPIUM BROMIDE) [Concomitant]
  12. WARFARIN (WARFARIN) [Concomitant]
  13. ZESTRIL/USA/(LISINOPRIL) [Concomitant]
  14. ADVAIR DISKUS (FLUTICASONE PROPIONATE, SALMETEROL XINAFOATE) [Concomitant]

REACTIONS (2)
  - Urticaria [None]
  - Weight decreased [None]
